FAERS Safety Report 13553876 (Version 1)
Quarter: 2017Q2

REPORT INFORMATION
  Report Type: Spontaneous
  Country: US (occurrence: US)
  Receive Date: 20170517
  Receipt Date: 20170517
  Transmission Date: 20170830
  Serious: Yes (Other)
  Sender: FDA-Public Use
  Company Number: US-TEVA-769515USA

PATIENT
  Age: 44 Year
  Sex: Female

DRUGS (3)
  1. DIAZEPAM. [Suspect]
     Active Substance: DIAZEPAM
     Indication: HUNTINGTON^S DISEASE
     Dosage: DAILY
     Route: 065
  2. CLOZAPINE. [Suspect]
     Active Substance: CLOZAPINE
     Indication: HUNTINGTON^S DISEASE
     Dosage: DAILY
     Route: 065
  3. OXAZEPAM. [Suspect]
     Active Substance: OXAZEPAM
     Indication: HUNTINGTON^S DISEASE
     Dosage: DAILY
     Route: 065

REACTIONS (1)
  - Coma [Recovered/Resolved]
